FAERS Safety Report 8495355-5 (Version None)
Quarter: 2012Q3

REPORT INFORMATION
  Report Type: 
  Country: None (occurrence: None)
  Receive Date: 20120709
  Receipt Date: 20120629
  Transmission Date: 20120928
  Serious: Yes (Hospitalization, Other)
  Sender: FDA-Public Use
  Company Number: US-VIROPHARMA INCORPORATED-20120515CINRY2971

PATIENT
  Sex: Female
  Weight: 56.296 kg

DRUGS (39)
  1. OXYCODONE HCL [Concomitant]
     Indication: PAIN
     Dosage: UNKNOWN
     Route: 048
  2. ACETAMINOPHEN [Concomitant]
     Indication: PRODUCT USED FOR UNKNOWN INDICATION
     Dosage: UNKNOWN
     Route: 065
  3. ASMANEX TWISTHALER [Concomitant]
     Indication: ASTHMA
     Route: 065
  4. FOSAMAX [Concomitant]
     Indication: OSTEOPOROSIS
     Route: 065
  5. PHENERGAN HCL [Concomitant]
     Dosage: UNKNOWN
     Route: 048
  6. WARFARIN SODIUM [Concomitant]
     Indication: PULMONARY EMBOLISM
     Dosage: 10 MG
     Route: 048
     Dates: start: 20120501, end: 20120501
  7. SPIRIVA [Concomitant]
     Indication: ASTHMA
  8. ENEMA [Concomitant]
     Indication: CONSTIPATION
     Dosage: UNKNOWN
     Route: 065
  9. MAGNESIUM CITRATE [Concomitant]
     Indication: CONSTIPATION
     Dosage: UNKNOWN
     Route: 048
  10. EPIPEN [Concomitant]
     Indication: HYPERSENSITIVITY
     Dosage: UNKNOWN
     Route: 065
  11. LIPITOR [Suspect]
     Indication: HYPERLIPIDAEMIA
     Route: 048
     Dates: end: 20120101
  12. NASONEX [Concomitant]
     Indication: SEASONAL ALLERGY
     Route: 045
  13. PHENERGAN HCL [Concomitant]
     Indication: NAUSEA
     Dosage: UNKNOWN
     Route: 054
  14. DILANTIN [Concomitant]
     Indication: CONVULSION
     Route: 065
     Dates: end: 20120604
  15. METAMUCIL-2 [Concomitant]
     Indication: CONSTIPATION
     Dosage: UNKNOWN
     Route: 048
  16. FERROUS GLUCONATE [Concomitant]
     Indication: PRODUCT USED FOR UNKNOWN INDICATION
     Dosage: UNKNOWN
     Route: 065
  17. NORTRIPTYLINE HCL [Concomitant]
     Indication: INSOMNIA
  18. PROBIOTICS [Concomitant]
     Indication: DISBACTERIOSIS
     Route: 048
  19. ALBUTEROL [Concomitant]
     Indication: ASTHMA
  20. ATENOLOL [Concomitant]
     Indication: HYPERTENSION
     Route: 048
  21. DANAZOL [Concomitant]
     Indication: HEREDITARY ANGIOEDEMA
     Route: 048
  22. NORTRIPTYLINE HCL [Concomitant]
     Indication: PAIN
     Route: 048
  23. IBUPROFEN [Concomitant]
     Indication: PRODUCT USED FOR UNKNOWN INDICATION
     Dosage: UNKNOWN
     Route: 065
  24. DILAUDID [Concomitant]
     Indication: PAIN
     Dosage: UNKNOWN
     Route: 065
  25. KALBITOR [Concomitant]
     Indication: HEREDITARY ANGIOEDEMA
     Dosage: UNKNOWN
     Route: 058
  26. PREVACID [Concomitant]
     Indication: GASTROOESOPHAGEAL REFLUX DISEASE
     Route: 048
  27. TRAZODONE HCL [Concomitant]
     Indication: INSOMNIA
     Route: 048
  28. WARFARIN SODIUM [Concomitant]
     Indication: DEEP VEIN THROMBOSIS
     Route: 048
     Dates: end: 20120501
  29. WARFARIN SODIUM [Concomitant]
     Route: 048
     Dates: start: 20120501
  30. ZOFRAN [Concomitant]
     Indication: NAUSEA
     Dosage: UNKNOWN
     Route: 065
  31. SOMA [Concomitant]
     Indication: MUSCLE RELAXANT THERAPY
     Route: 048
  32. SOMA [Concomitant]
     Indication: PAIN
  33. COLACE [Concomitant]
     Indication: CONSTIPATION
     Route: 048
  34. MIRALAX [Concomitant]
     Indication: CONSTIPATION
     Dosage: UNKNOWN
     Route: 048
  35. DULCOLAX [Concomitant]
     Indication: FAECES HARD
     Dosage: UNKNOWN
     Route: 048
  36. DILANTIN [Concomitant]
     Dosage: 100 MG AM/400 MG PM
     Route: 065
     Dates: start: 20120605
  37. CINRYZE [Suspect]
     Indication: HEREDITARY ANGIOEDEMA
     Dates: start: 20100101
  38. DIPHENHYDRAMINE HCL [Concomitant]
     Indication: PRODUCT USED FOR UNKNOWN INDICATION
     Route: 048
  39. FIORICET [Concomitant]
     Indication: MIGRAINE
     Dosage: 325/50/50
     Route: 065

REACTIONS (6)
  - PANCREATITIS [None]
  - URINARY TRACT INFECTION [None]
  - TRANSAMINASES INCREASED [None]
  - INAPPROPRIATE SCHEDULE OF DRUG ADMINISTRATION [None]
  - ANGIOEDEMA [None]
  - HEREDITARY ANGIOEDEMA [None]
